FAERS Safety Report 9158010 (Version 2)
Quarter: 2013Q1

REPORT INFORMATION
  Report Type: Spontaneous
  Country: US (occurrence: None)
  Receive Date: 20130212
  Receipt Date: 20130214
  Transmission Date: 20140127
  Serious: Yes (Other)
  Sender: FDA-Public Use
  Company Number: USA/USA/13/0027814

PATIENT
  Age: 47 Year
  Sex: Male

DRUGS (2)
  1. IBUPROFEN (IBUPROFEN) [Suspect]
     Indication: TOOTHACHE
  2. CETIRIZINE (CETIRIZINE HYDROCHLORIDE) [Concomitant]

REACTIONS (4)
  - Drug eruption [None]
  - Staphylococcal infection [None]
  - Rash erythematous [None]
  - Blister [None]
